FAERS Safety Report 6683280-1 (Version None)
Quarter: 2010Q2

REPORT INFORMATION
  Report Type: 
  Country: None (occurrence: None)
  Receive Date: 20100415
  Receipt Date: 20100412
  Transmission Date: 20101027
  Serious: Yes (Other)
  Sender: FDA-Public Use
  Company Number: NZ-ROXANE LABORATORIES, INC.-2010-RO-00406RO

PATIENT
  Age: 18 Year
  Sex: Male

DRUGS (10)
  1. MORPHINE [Suspect]
     Indication: POSTOPERATIVE ANALGESIA
  2. DIAZEPAM [Suspect]
     Indication: PREMEDICATION
  3. TRAMADOL HCL [Suspect]
     Indication: INDUCTION OF ANAESTHESIA
  4. ATRACURIUM BESYLATE [Suspect]
     Indication: NEUROMUSCULAR BLOCKADE
  5. ISOFLURANE [Suspect]
     Indication: MAINTENANCE OF ANAESTHESIA
  6. NITROUS OXIDE [Suspect]
     Indication: MAINTENANCE OF ANAESTHESIA
  7. FENTANYL [Suspect]
     Indication: ANAESTHESIA
  8. NEOSTIGMINE [Suspect]
     Indication: NEUROMUSCULAR BLOCKADE REVERSAL
  9. ATROPINE [Suspect]
     Indication: NEUROMUSCULAR BLOCKADE REVERSAL
  10. NALOXONE [Suspect]

REACTIONS (3)
  - CHEST X-RAY ABNORMAL [None]
  - CYANOSIS [None]
  - UNRESPONSIVE TO STIMULI [None]
